FAERS Safety Report 20807048 (Version 1)
Quarter: 2022Q2

REPORT INFORMATION
  Report Type: Spontaneous
  Country: US (occurrence: US)
  Receive Date: 20220510
  Receipt Date: 20220510
  Transmission Date: 20220720
  Serious: No
  Sender: FDA-Public Use
  Company Number: US-CIPLA LTD.-2021US07538

PATIENT

DRUGS (2)
  1. EXEMESTANE [Suspect]
     Active Substance: EXEMESTANE
     Indication: Breast cancer
     Dosage: 600 MILLIGRAM, QD
     Route: 065
     Dates: start: 2021
  2. LEVOTHYROXINE [Concomitant]
     Active Substance: LEVOTHYROXINE
     Indication: Hypothyroidism
     Dosage: 112 MICROGRAM, PER DAY (SINCE 25 YEARS)
     Route: 065

REACTIONS (1)
  - Alopecia [Not Recovered/Not Resolved]

NARRATIVE: CASE EVENT DATE: 20211020
